FAERS Safety Report 9614773 (Version 4)
Quarter: 2013Q4

REPORT INFORMATION
  Report Type: Report from Study
  Country: DK (occurrence: DK)
  Receive Date: 20131011
  Receipt Date: 20131226
  Transmission Date: 20140711
  Serious: Yes (Hospitalization)
  Sender: FDA-Public Use
  Company Number: DK-SANOFI-AVENTIS-2013SA088913

PATIENT
  Age: 64 Year
  Sex: Male
  Weight: 85 kg

DRUGS (9)
  1. CABAZITAXEL [Suspect]
     Indication: PROSTATE CANCER METASTATIC
     Route: 042
     Dates: start: 20130205, end: 20130205
  2. CABAZITAXEL [Suspect]
     Indication: PROSTATE CANCER METASTATIC
     Route: 042
     Dates: start: 20130813, end: 20130813
  3. PREDNISOLONE [Suspect]
     Indication: PROSTATE CANCER METASTATIC
     Route: 048
     Dates: start: 20130205, end: 20130903
  4. CALCIUM [Concomitant]
     Indication: PROPHYLAXIS
     Route: 048
  5. SIMVASTATIN [Concomitant]
     Indication: PROPHYLAXIS
     Route: 048
  6. IMOLOPE [Concomitant]
     Indication: PROPHYLAXIS
     Route: 048
     Dates: start: 20130205
  7. EMPERAL [Concomitant]
     Indication: PROPHYLAXIS
     Route: 048
     Dates: start: 20130205, end: 20130903
  8. ONDANSETRON [Concomitant]
     Indication: PROPHYLAXIS
     Route: 048
     Dates: start: 20130205, end: 20130903
  9. MABLET [Concomitant]
     Route: 048
     Dates: start: 20130419

REACTIONS (2)
  - Duodenal ulcer [Recovered/Resolved with Sequelae]
  - Anaemia [Recovered/Resolved]
